FAERS Safety Report 25625954 (Version 1)
Quarter: 2025Q3

REPORT INFORMATION
  Report Type: Report from Study
  Country: US (occurrence: US)
  Receive Date: 20250731
  Receipt Date: 20250731
  Transmission Date: 20251021
  Serious: Yes (Other)
  Sender: MERCK SHARP & DOHME LLC
  Company Number: US-009507513-2236789

PATIENT
  Age: 49 Year
  Sex: Female
  Weight: 83 kg

DRUGS (27)
  1. WINREVAIR [Suspect]
     Active Substance: SOTATERCEPT-CSRK
     Indication: Pulmonary arterial hypertension
     Dosage: STRENGTH: 60 MILLIGRAM
     Route: 058
     Dates: start: 20240625
  2. WINREVAIR [Suspect]
     Active Substance: SOTATERCEPT-CSRK
  3. WINREVAIR [Suspect]
     Active Substance: SOTATERCEPT-CSRK
  4. WINREVAIR [Suspect]
     Active Substance: SOTATERCEPT-CSRK
  5. WINREVAIR [Suspect]
     Active Substance: SOTATERCEPT-CSRK
  6. WINREVAIR [Suspect]
     Active Substance: SOTATERCEPT-CSRK
  7. WINREVAIR [Suspect]
     Active Substance: SOTATERCEPT-CSRK
  8. WINREVAIR [Suspect]
     Active Substance: SOTATERCEPT-CSRK
  9. PREGABALIN [Concomitant]
     Active Substance: PREGABALIN
  10. TYLENOL EXTRA STRENGTH [Concomitant]
     Active Substance: ACETAMINOPHEN
  11. FOLIC ACID [Concomitant]
     Active Substance: FOLIC ACID
  12. TADALAFIL [Concomitant]
     Active Substance: TADALAFIL
  13. ACTEMRA ACTPEN [Concomitant]
     Active Substance: TOCILIZUMAB
  14. CALCIUM\CHOLECALCIFEROL [Concomitant]
     Active Substance: CALCIUM\CHOLECALCIFEROL
  15. OMEPRAZOLE [Concomitant]
     Active Substance: OMEPRAZOLE
  16. OPSUMIT [Concomitant]
     Active Substance: MACITENTAN
  17. METHOTREXATE [Concomitant]
     Active Substance: METHOTREXATE
  18. LEVOTHYROXINE SODIUM [Concomitant]
     Active Substance: LEVOTHYROXINE SODIUM
  19. SPIRONOLACTONE [Concomitant]
     Active Substance: SPIRONOLACTONE
  20. AMLODIPINE BESYLATE [Concomitant]
     Active Substance: AMLODIPINE BESYLATE
  21. TYVASO [Suspect]
     Active Substance: TREPROSTINIL
     Indication: Pulmonary arterial hypertension
     Dosage: CONCENTRATION OF 0.6 MG/ML?36 MICROGRAM (6 BREATHES)
     Route: 055
     Dates: start: 20241121
  22. TYVASO [Suspect]
     Active Substance: TREPROSTINIL
     Indication: Pulmonary arterial hypertension
     Dosage: 42 UG, QID, INHALATION
     Route: 055
  23. TYVASO [Suspect]
     Active Substance: TREPROSTINIL
     Indication: Pulmonary arterial hypertension
     Route: 055
     Dates: start: 20241121
  24. CEFDINIR [Concomitant]
     Active Substance: CEFDINIR
  25. PREDNISONE [Concomitant]
     Active Substance: PREDNISONE
  26. AZITHROMYCIN [Concomitant]
     Active Substance: AZITHROMYCIN
  27. RINVOQ [Concomitant]
     Active Substance: UPADACITINIB

REACTIONS (2)
  - Epistaxis [Recovering/Resolving]
  - Upper respiratory tract infection [Unknown]

NARRATIVE: CASE EVENT DATE: 20250101
